FAERS Safety Report 14048559 (Version 14)
Quarter: 2019Q3

REPORT INFORMATION
  Report Type: Report from Study
  Country: US (occurrence: US)
  Receive Date: 20171005
  Receipt Date: 20190731
  Transmission Date: 20191004
  Serious: Yes (Life-Threatening, Hospitalization, Disabling, Other)
  Sender: FDA-Public Use
  Company Number: US-SA-2017SA111252

PATIENT
  Age: 47 Year
  Sex: Male

DRUGS (21)
  1. ZYRTEC [Concomitant]
     Active Substance: CETIRIZINE HYDROCHLORIDE
     Indication: HYPERSENSITIVITY
     Dosage: UNK UNK, QD
     Route: 048
     Dates: start: 200303
  2. VALIUM [Concomitant]
     Active Substance: DIAZEPAM
     Indication: MUSCLE SPASTICITY
  3. ALEMTUZUMAB [Suspect]
     Active Substance: ALEMTUZUMAB
     Indication: MULTIPLE SCLEROSIS
     Dosage: 12 MG, QD
     Route: 041
     Dates: start: 20170501, end: 20170505
  4. FLUCONAZOLE. [Suspect]
     Active Substance: FLUCONAZOLE
     Indication: COCCIDIOIDOMYCOSIS
     Dosage: 200 MG, QID
     Route: 048
     Dates: start: 2017
  5. GABAPENTIN. [Concomitant]
     Active Substance: GABAPENTIN
     Dosage: 300 MG, QID
     Route: 048
     Dates: start: 2016
  6. BACLOFEN. [Concomitant]
     Active Substance: BACLOFEN
     Indication: MUSCLE SPASMS
     Dosage: 40-60 MG A DAY, 10-20 MG ONE OR TWICE A DAY
  7. VALIUM [Concomitant]
     Active Substance: DIAZEPAM
     Indication: ANXIETY
  8. TECFIDERA [Concomitant]
     Active Substance: DIMETHYL FUMARATE
     Indication: MULTIPLE SCLEROSIS
  9. TYSABRI [Concomitant]
     Active Substance: NATALIZUMAB
     Indication: MULTIPLE SCLEROSIS
  10. BETAFERON [Concomitant]
     Active Substance: INTERFERON BETA-1B
     Indication: MULTIPLE SCLEROSIS
  11. COPAXONE [Concomitant]
     Active Substance: GLATIRAMER ACETATE
     Indication: MULTIPLE SCLEROSIS
  12. AMPYRA [Concomitant]
     Active Substance: DALFAMPRIDINE
     Dosage: 10 MG, BID
     Route: 048
     Dates: start: 2016
  13. ACYCLOVIR [ACICLOVIR] [Concomitant]
     Active Substance: ACYCLOVIR
     Dosage: 400 MG, BID
     Route: 048
     Dates: start: 201704
  14. XYZAL [Concomitant]
     Active Substance: LEVOCETIRIZINE DIHYDROCHLORIDE
     Dosage: 5 MG, ONCE OR TWICE
     Dates: start: 2017
  15. AVONEX [Concomitant]
     Active Substance: INTERFERON BETA-1A
     Indication: MULTIPLE SCLEROSIS
  16. FLUCONAZOLE. [Suspect]
     Active Substance: FLUCONAZOLE
     Dosage: 800 MG, UNK
  17. LEXAPRO [Concomitant]
     Active Substance: ESCITALOPRAM OXALATE
     Indication: DEPRESSION
     Dosage: 20 MG, QD
     Route: 048
     Dates: start: 2002
  18. VALIUM [Concomitant]
     Active Substance: DIAZEPAM
     Indication: MUSCLE RELAXANT THERAPY
     Dosage: 5 MG, 3-5 TIMES
     Route: 048
     Dates: start: 2015
  19. VALIUM [Concomitant]
     Active Substance: DIAZEPAM
     Indication: TREMOR
  20. DEPLIN [Concomitant]
     Active Substance: LEVOMEFOLATE CALCIUM
     Dosage: 15 MG, ONCE OR TWICE
     Dates: start: 2016
  21. TIZANIDINE. [Concomitant]
     Active Substance: TIZANIDINE
     Indication: MUSCLE RELAXANT THERAPY
     Dosage: UNK UNK, PRN
     Route: 048
     Dates: start: 201608

REACTIONS (64)
  - Multiple sclerosis [Unknown]
  - Tremor [Unknown]
  - Dysarthria [Not Recovered/Not Resolved]
  - Depression [Unknown]
  - CD4 lymphocytes decreased [Not Recovered/Not Resolved]
  - Bedridden [Recovered/Resolved]
  - Oropharyngeal pain [Not Recovered/Not Resolved]
  - Blister [Recovered/Resolved]
  - Ataxia [Recovered/Resolved]
  - Rocky mountain spotted fever [Not Recovered/Not Resolved]
  - Consciousness fluctuating [Unknown]
  - Dysaesthesia [Not Recovered/Not Resolved]
  - Immunodeficiency [Unknown]
  - Lymphocyte count decreased [Not Recovered/Not Resolved]
  - Nasopharyngitis [Recovered/Resolved]
  - Herpes simplex [Recovered/Resolved]
  - Computerised tomogram abnormal [Unknown]
  - Skin discolouration [Not Recovered/Not Resolved]
  - Hyperhidrosis [Recovered/Resolved]
  - Asthenia [Recovered/Resolved]
  - Muscle rigidity [Not Recovered/Not Resolved]
  - Muscle spasticity [Recovered/Resolved]
  - Pruritus [Recovered/Resolved]
  - Fatigue [Not Recovered/Not Resolved]
  - Facial spasm [Not Recovered/Not Resolved]
  - White blood cell count decreased [Not Recovered/Not Resolved]
  - Dementia [Unknown]
  - Hypoacusis [Unknown]
  - Rash pustular [Recovered/Resolved]
  - Chills [Unknown]
  - Increased tendency to bruise [Not Recovered/Not Resolved]
  - Neuralgia [Unknown]
  - Confusional state [Unknown]
  - Pain [Not Recovered/Not Resolved]
  - Respiratory tract congestion [Not Recovered/Not Resolved]
  - CD4 lymphocytes abnormal [Recovered/Resolved]
  - Full blood count decreased [Not Recovered/Not Resolved]
  - Influenza like illness [Recovered/Resolved]
  - Pyrexia [Recovered/Resolved]
  - Tonsillar hypertrophy [Not Recovered/Not Resolved]
  - Full blood count decreased [Recovered/Resolved]
  - Anxiety [Unknown]
  - Facial pain [Not Recovered/Not Resolved]
  - Toxoplasmosis [Unknown]
  - Herpes zoster [Recovered/Resolved]
  - Coccidioidomycosis [Not Recovered/Not Resolved]
  - Lymphadenopathy [Not Recovered/Not Resolved]
  - Hemiparesis [Recovered/Resolved]
  - Arthralgia [Unknown]
  - Clonus [Unknown]
  - Ataxia [Not Recovered/Not Resolved]
  - Affective disorder [Unknown]
  - Multiple sclerosis relapse [Not Recovered/Not Resolved]
  - Feeling abnormal [Recovered/Resolved]
  - Rash erythematous [Recovered/Resolved]
  - Pain [Recovered/Resolved]
  - Mobility decreased [Not Recovered/Not Resolved]
  - Feeling of body temperature change [Unknown]
  - Burning sensation [Recovered/Resolved]
  - Ear infection [Unknown]
  - Oral herpes [Recovered/Resolved]
  - Rash [Recovered/Resolved]
  - Lymphocyte count decreased [Recovered/Resolved]
  - Sleep disorder [Unknown]

NARRATIVE: CASE EVENT DATE: 20170518
